FAERS Safety Report 14299722 (Version 1)
Quarter: 2017Q4

REPORT INFORMATION
  Report Type: Report from Study
  Country: US (occurrence: US)
  Receive Date: 20171219
  Receipt Date: 20171219
  Transmission Date: 20180321
  Serious: Yes (Death, Other)
  Sender: FDA-Public Use
  Company Number: US-ROCHE-2042488

PATIENT

DRUGS (6)
  1. CETUXIMAB. [Suspect]
     Active Substance: CETUXIMAB
     Indication: NON-SMALL CELL LUNG CANCER
     Dosage: ON WEEK 1 OF CYCLE ?LOADING DOSE
     Route: 042
  2. CARBOPLATIN. [Suspect]
     Active Substance: CARBOPLATIN
     Indication: NON-SMALL CELL LUNG CANCER
     Route: 042
  3. PACLITAXEL. [Suspect]
     Active Substance: PACLITAXEL
     Indication: NON-SMALL CELL LUNG CANCER
     Route: 042
  4. CETUXIMAB. [Suspect]
     Active Substance: CETUXIMAB
     Route: 042
  5. BEVACIZUMAB. [Suspect]
     Active Substance: BEVACIZUMAB
     Indication: NON-SMALL CELL LUNG CANCER
     Dosage: 30-90 MIN INTRAVENOUS INFUSION 1 H AFTER CARBOPLATIN
     Route: 042
  6. DIPHENHYDRAMINE HYDROCHLORIDE. [Concomitant]
     Active Substance: DIPHENHYDRAMINE HYDROCHLORIDE
     Indication: PROPHYLAXIS
     Route: 042

REACTIONS (64)
  - Adrenal insufficiency [Unknown]
  - Cardio-respiratory arrest [Unknown]
  - Gastrointestinal perforation [Fatal]
  - Infection [Fatal]
  - Febrile neutropenia [Fatal]
  - Decreased appetite [Unknown]
  - Arrhythmia [Unknown]
  - Myocardial infarction [Unknown]
  - Dehydration [Unknown]
  - Hypomagnesaemia [Unknown]
  - Hypoxia [Unknown]
  - Encephalopathy [Unknown]
  - Hepatotoxicity [Unknown]
  - Pneumothorax [Unknown]
  - Dyspnoea [Fatal]
  - Multiple organ dysfunction syndrome [Fatal]
  - White blood cell count decreased [Unknown]
  - Platelet count decreased [Unknown]
  - Alanine aminotransferase abnormal [Unknown]
  - Hyperuricaemia [Unknown]
  - Hypokalaemia [Unknown]
  - Cardiac failure congestive [Unknown]
  - Diverticulitis [Unknown]
  - Haemorrhage [Fatal]
  - Ischaemia [Fatal]
  - Aspiration [Unknown]
  - Cytokine release syndrome [Unknown]
  - Intestinal ischaemia [Unknown]
  - Septic shock [Unknown]
  - Lymphopenia [Unknown]
  - Obstructive airways disorder [Unknown]
  - Hypersensitivity [Unknown]
  - Hyperkalaemia [Unknown]
  - Hypertension [Unknown]
  - Hyponatraemia [Unknown]
  - Cardiac tamponade [Unknown]
  - Lung abscess [Unknown]
  - Pulmonary embolism [Unknown]
  - Clostridium difficile infection [Unknown]
  - Carbon monoxide diffusing capacity decreased [Fatal]
  - Respiratory failure [Fatal]
  - Gastrointestinal haemorrhage [Unknown]
  - Pericardial effusion [Unknown]
  - Pancytopenia [Unknown]
  - Cerebrovascular accident [Unknown]
  - Urinary retention [Unknown]
  - Cardiac arrest [Fatal]
  - Seizure [Fatal]
  - Embolism [Fatal]
  - Haemoglobin decreased [Unknown]
  - Pneumonitis [Unknown]
  - Atrial fibrillation [Unknown]
  - Mitral valve incompetence [Unknown]
  - Pneumonia [Unknown]
  - Death [Fatal]
  - Hypotension [Fatal]
  - Thrombosis [Fatal]
  - Pulmonary haemorrhage [Fatal]
  - Aspartate aminotransferase abnormal [Unknown]
  - Diarrhoea [Unknown]
  - Gastrointestinal ulcer [Unknown]
  - Pneumoperitoneum [Fatal]
  - Cytokine release syndrome [Fatal]
  - Neutrophil count decreased [Unknown]
